FAERS Safety Report 4930099-5 (Version None)
Quarter: 2006Q1

REPORT INFORMATION
  Report Type: 
  Country: None (occurrence: None)
  Receive Date: 20060302
  Receipt Date: 20051221
  Transmission Date: 20060701
  Serious: Yes (Death, Hospitalization)
  Sender: FDA-Public Use
  Company Number: DEWYE253721DEC05

PATIENT
  Sex: Female
  Weight: 78 kg

DRUGS (3)
  1. ENBREL [Suspect]
     Indication: PSORIASIS
     Dosage: UNKNOWN
     Route: 058
     Dates: start: 20020101, end: 20050101
  2. ARAVA [Suspect]
     Indication: PSORIASIS
     Dosage: UNKNOWN
     Route: 048
     Dates: start: 20020101, end: 20050101
  3. PREDNISOLONE [Suspect]
     Indication: PSORIASIS
     Route: 048
     Dates: start: 20020101

REACTIONS (16)
  - CARDIAC FAILURE [None]
  - CARDIOGENIC SHOCK [None]
  - DISSEMINATED INTRAVASCULAR COAGULATION [None]
  - DYSPNOEA [None]
  - GENERAL PHYSICAL HEALTH DETERIORATION [None]
  - HYPERHIDROSIS [None]
  - INTRACARDIAC THROMBUS [None]
  - MALAISE [None]
  - METABOLIC ACIDOSIS [None]
  - MYOCARDITIS [None]
  - OEDEMA PERIPHERAL [None]
  - PNEUMONIA [None]
  - PNEUMONIA STAPHYLOCOCCAL [None]
  - RENAL FAILURE ACUTE [None]
  - STAPHYLOCOCCAL SEPSIS [None]
  - TACHYCARDIA [None]
